FAERS Safety Report 5320838-6 (Version None)
Quarter: 2007Q2

REPORT INFORMATION
  Report Type: 
  Country: None (occurrence: None)
  Receive Date: 20070502
  Receipt Date: 20070420
  Transmission Date: 20071010
  Serious: Yes (Hospitalization)
  Sender: FDA-Public Use
  Company Number: 2007EN000122

PATIENT
  Age: 58 Year
  Sex: Female
  Weight: 128.8216 kg

DRUGS (12)
  1. OPANA [Suspect]
     Indication: DRUG USE FOR UNKNOWN INDICATION
     Dates: end: 20070401
  2. OPANA ER [Suspect]
     Indication: DRUG USE FOR UNKNOWN INDICATION
     Dates: end: 20070401
  3. SKELAXIN [Suspect]
     Indication: DRUG USE FOR UNKNOWN INDICATION
     Dates: end: 20070401
  4. TRAZODONE HCL [Suspect]
     Indication: DRUG USE FOR UNKNOWN INDICATION
     Dates: end: 20070401
  5. VISTARIL [Suspect]
     Indication: DRUG USE FOR UNKNOWN INDICATION
     Dates: end: 20070401
  6. AMBIEN [Concomitant]
  7. QUININE SULFATE [Concomitant]
  8. SINEMET [Concomitant]
  9. INSULIN [Concomitant]
  10. JANUVIA [Concomitant]
  11. AMARYL [Concomitant]
  12. ULTRAM [Concomitant]

REACTIONS (4)
  - DRUG INTERACTION [None]
  - FALSE POSITIVE LABORATORY RESULT [None]
  - NARCOTIC INTOXICATION [None]
  - TROPONIN INCREASED [None]
